FAERS Safety Report 15274467 (Version 6)
Quarter: 2019Q3

REPORT INFORMATION
  Report Type: Report from Study
  Country: None (occurrence: US)
  Receive Date: 20180814
  Receipt Date: 20190930
  Transmission Date: 20191004
  Serious: Yes (Other)
  Sender: FDA-Public Use
  Company Number: US-ABBVIE-18K-163-2451032-00

PATIENT
  Sex: Female
  Weight: 110.32 kg

DRUGS (1)
  1. HUMIRA [Suspect]
     Active Substance: ADALIMUMAB
     Indication: HIDRADENITIS
     Route: 058
     Dates: start: 20180212

REACTIONS (10)
  - Asthma [Unknown]
  - Knee arthroplasty [Recovering/Resolving]
  - Intervertebral disc degeneration [Unknown]
  - Vitamin D decreased [Unknown]
  - Sinusitis [Recovered/Resolved]
  - Knee arthroplasty [Unknown]
  - Uterine cyst [Recovered/Resolved]
  - Furuncle [Not Recovered/Not Resolved]
  - Hidradenitis [Recovering/Resolving]
  - Arthralgia [Recovering/Resolving]

NARRATIVE: CASE EVENT DATE: 2018
